FAERS Safety Report 7801440-0 (Version None)
Quarter: 2011Q4

REPORT INFORMATION
  Report Type: 
  Country: None (occurrence: None)
  Receive Date: 20111005
  Receipt Date: 20110921
  Transmission Date: 20120403
  Serious: Yes (Other)
  Sender: FDA-Public Use
  Company Number: 1000024337

PATIENT
  Age: 40 Year
  Sex: Female
  Weight: 69 kg

DRUGS (5)
  1. TEMAZEPAM [Concomitant]
  2. CITALOPRAM HYDROBROMIDE [Suspect]
     Indication: DEPRESSION
     Dosage: 80 MG (80 MG,1 IN 1 D)
     Dates: start: 20011127, end: 20020103
  3. RISPERIDONE [Suspect]
     Dosage: 1.5 MG (1.5 MG,1 IN 1 D)
     Dates: start: 20000101
  4. BNHEZTROPINE MESYLATE (BENZATROPINE MESILATE) (BENZATROPINE MESILATE) [Concomitant]
  5. HALOPERIDOL (HALOPERIDOL) (HALOPERIDOL) [Concomitant]

REACTIONS (2)
  - ELECTROCARDIOGRAM QT PROLONGED [None]
  - ATRIOVENTRICULAR BLOCK [None]
